FAERS Safety Report 21351166 (Version 1)
Quarter: 2022Q3

REPORT INFORMATION
  Report Type: Spontaneous
  Country: US (occurrence: None)
  Receive Date: 20220919
  Receipt Date: 20220919
  Transmission Date: 20221027
  Serious: No
  Sender: FDA-Public Use
  Company Number: US-Aadi Bioscience, Inc-2022-AAD-00329

PATIENT
  Age: 65 Year
  Sex: Female

DRUGS (1)
  1. FYARRO [Suspect]
     Active Substance: SIROLIMUS
     Indication: Product used for unknown indication
     Dosage: 212 MG OVER 30 MINUTES ON DAYS 1 AND 8 OF A 21-DAY CYCLE.
     Route: 042
     Dates: start: 20220520

REACTIONS (1)
  - COVID-19 [Unknown]
